FAERS Safety Report 4434347-X (Version None)
Quarter: 2004Q3

REPORT INFORMATION
  Report Type: 
  Country: None (occurrence: None)
  Receive Date: 20040825
  Receipt Date: 20040818
  Transmission Date: 20050211
  Serious: Yes (Other)
  Sender: FDA-Public Use
  Company Number: 200413262BCC

PATIENT
  Sex: Female

DRUGS (6)
  1. NEO-SYNEPHRINE 12 HOUR (OXYMETAZOLINE HYDROCHLORIDE) [Suspect]
     Indication: NASAL CONGESTION
     Dosage: NASAL
     Route: 045
  2. ALAVERT [Concomitant]
  3. MICRONOR [Concomitant]
  4. WELLBUTRIN [Concomitant]
  5. LEXAPRO [Concomitant]
  6. VITAMINS (NOS) [Concomitant]

REACTIONS (4)
  - DRUG DEPENDENCE [None]
  - DRUG EFFECT DECREASED [None]
  - NASAL CONGESTION [None]
  - PANIC REACTION [None]
